FAERS Safety Report 9219966 (Version 1)
Quarter: 2013Q2

REPORT INFORMATION
  Report Type: Spontaneous
  Country: US (occurrence: US)
  Receive Date: 20130409
  Receipt Date: 20130409
  Transmission Date: 20140414
  Serious: No
  Sender: FDA-Public Use
  Company Number: US-PFIZER INC-2013107345

PATIENT
  Age: 34 Year
  Sex: Female
  Weight: 134.51 kg

DRUGS (6)
  1. AMPICILLIN [Suspect]
     Dosage: UNK
  2. CLINDAMYCIN HCL [Suspect]
     Dosage: UNK
  3. FLAGYL [Suspect]
     Dosage: UNK
  4. DOXYCYCLINE MONOHYDRATE [Suspect]
     Dosage: UNK
  5. LEVAQUIN [Suspect]
     Dosage: UNK
  6. TRAMADOL [Suspect]
     Dosage: UNK

REACTIONS (1)
  - Drug hypersensitivity [Unknown]
